FAERS Safety Report 6274425-6 (Version None)
Quarter: 2009Q3

REPORT INFORMATION
  Report Type: 
  Country: None (occurrence: None)
  Receive Date: 20090716
  Receipt Date: 20090713
  Transmission Date: 20100115
  Serious: Yes (Hospitalization, Other)
  Sender: FDA-Public Use
  Company Number: 1000007417

PATIENT
  Age: 35 Year
  Sex: Female

DRUGS (2)
  1. ARMOUR THYROID (THYRPID) (60 MILLIGRAM, TABLETS) [Suspect]
     Indication: HYPOTHYROIDISM
     Dosage: 120 MG (120 MG, 1 IN 1 D), ORAL
     Route: 048
     Dates: start: 20060101, end: 20090101
  2. MULTI-VITAMINS [Concomitant]

REACTIONS (10)
  - ERYTHEMA [None]
  - FATIGUE [None]
  - FEELING ABNORMAL [None]
  - HEADACHE [None]
  - MEMORY IMPAIRMENT [None]
  - MYALGIA [None]
  - NAUSEA [None]
  - OEDEMA [None]
  - THYROTOXIC CRISIS [None]
  - WEIGHT INCREASED [None]
